FAERS Safety Report 16103305 (Version 3)
Quarter: 2019Q3

REPORT INFORMATION
  Report Type: Spontaneous
  Country: GT (occurrence: GT)
  Receive Date: 20190322
  Receipt Date: 20190702
  Transmission Date: 20191004
  Serious: Yes (Other)
  Sender: FDA-Public Use
  Company Number: GT-SUN PHARMACEUTICAL INDUSTRIES LTD-2019R1-202424

PATIENT
  Age: 28 Year
  Sex: Female

DRUGS (1)
  1. PREDNISONE. [Suspect]
     Active Substance: PREDNISONE
     Indication: DERMATOMYOSITIS
     Dosage: 50 MILLIGRAM, DAILY
     Route: 048

REACTIONS (2)
  - Myopathy [Recovered/Resolved]
  - Disease progression [Unknown]
